FAERS Safety Report 25235520 (Version 1)
Quarter: 2025Q2

REPORT INFORMATION
  Report Type: Report from Study
  Country: US (occurrence: US)
  Receive Date: 20250424
  Receipt Date: 20250424
  Transmission Date: 20250716
  Serious: Yes (Other)
  Sender: PFIZER
  Company Number: US-PFIZER INC-PV202500044598

PATIENT
  Age: 83 Year
  Sex: Female
  Weight: 62.4 kg

DRUGS (22)
  1. INFLIXIMAB [Suspect]
     Active Substance: INFLIXIMAB
  2. METHOTREXATE SODIUM [Suspect]
     Active Substance: METHOTREXATE SODIUM
  3. SULFASALAZINE [Suspect]
     Active Substance: SULFASALAZINE
  4. XELJANZ [Suspect]
     Active Substance: TOFACITINIB CITRATE
  5. ENBREL [Suspect]
     Active Substance: ETANERCEPT
  6. OTEZLA [Suspect]
     Active Substance: APREMILAST
     Indication: Psoriatic arthropathy
     Dosage: 30 MG, 2X/DAY
     Dates: start: 20230809
  7. OTEZLA [Suspect]
     Active Substance: APREMILAST
     Dosage: 30 MG, 2X/DAY
  8. PREDNISONE [Suspect]
     Active Substance: PREDNISONE
     Route: 048
     Dates: start: 20231207
  9. HYDROXYCHLOROQUINE [Suspect]
     Active Substance: HYDROXYCHLOROQUINE
  10. HUMIRA [Suspect]
     Active Substance: ADALIMUMAB
  11. TRIAMTERENE AND HYDROCHLOROTHIAZIDE [Concomitant]
     Active Substance: HYDROCHLOROTHIAZIDE\TRIAMTERENE
     Dates: start: 20190322
  12. OMEPRAZOLE [Concomitant]
     Active Substance: OMEPRAZOLE
     Dates: start: 20190813
  13. ATORVASTATIN CALCIUM [Concomitant]
     Active Substance: ATORVASTATIN CALCIUM
     Dates: start: 20190322
  14. ESTRADIOL [Concomitant]
     Active Substance: ESTRADIOL
     Dates: start: 20190813
  15. CALCIUM +D [CALCIUM CARBONATE;COLECALCIFEROL] [Concomitant]
     Dates: start: 20190813
  16. BIOTIN [Concomitant]
     Active Substance: BIOTIN
     Dates: start: 20190813
  17. POTASSIUM CHLORIDE [Concomitant]
     Active Substance: POTASSIUM CHLORIDE
     Dates: start: 20210803
  18. TRAZODONE HYDROCHLORIDE [Concomitant]
     Active Substance: TRAZODONE HYDROCHLORIDE
     Dates: start: 20230523
  19. LEFLUNOMIDE [Concomitant]
     Active Substance: LEFLUNOMIDE
     Dates: start: 20231207
  20. VOLTAREN [Concomitant]
     Active Substance: DICLOFENAC SODIUM
     Dates: start: 20231207
  21. DILTIAZEM HYDROCHLORIDE [Concomitant]
     Active Substance: DILTIAZEM HYDROCHLORIDE
  22. ARAVA [Concomitant]
     Active Substance: LEFLUNOMIDE

REACTIONS (8)
  - Condition aggravated [Unknown]
  - Therapy interrupted [Unknown]
  - Dry eye [Unknown]
  - Gout [Recovered/Resolved]
  - Psoriasis [Recovered/Resolved]
  - Osteoarthritis [Unknown]
  - Nodal osteoarthritis [Unknown]
  - Treatment failure [Unknown]
